FAERS Safety Report 9969917 (Version 1)
Quarter: 2014Q1

REPORT INFORMATION
  Report Type: Spontaneous
  Country: US (occurrence: None)
  Receive Date: 20140131
  Receipt Date: 20140131
  Transmission Date: 20141002
  Serious: Yes (Other)
  Sender: FDA-Public Use
  Company Number: 073045

PATIENT
  Age: 48 Year
  Sex: Female

DRUGS (4)
  1. KEPPRA [Suspect]
  2. RETIGABINE [Suspect]
     Indication: PARTIAL SEIZURES
     Route: 048
  3. LAMICTAL [Suspect]
     Indication: PARTIAL SEIZURES
     Route: 048
  4. PHENOBARBITAL [Suspect]

REACTIONS (2)
  - Complex partial seizures [None]
  - Partial seizures [None]
